FAERS Safety Report 17552698 (Version 7)
Quarter: 2022Q1

REPORT INFORMATION
  Report Type: Report from Study
  Country: CO (occurrence: CO)
  Receive Date: 20200318
  Receipt Date: 20220225
  Transmission Date: 20220424
  Serious: Yes (Hospitalization, Disabling, Other)
  Sender: FDA-Public Use
  Company Number: CO-ABBVIE-20K-036-3284595-00

PATIENT
  Sex: Female
  Weight: 56 kg

DRUGS (4)
  1. ZEMPLAR [Suspect]
     Active Substance: PARICALCITOL
     Indication: Hyperparathyroidism secondary
     Dosage: POST-DYALISIS
     Route: 042
     Dates: start: 20150925, end: 20200203
  2. ZEMPLAR [Suspect]
     Active Substance: PARICALCITOL
     Indication: Chronic kidney disease
     Route: 042
     Dates: end: 20210714
  3. ZEMPLAR [Suspect]
     Active Substance: PARICALCITOL
     Route: 042
     Dates: start: 2021, end: 20211027
  4. ZEMPLAR [Suspect]
     Active Substance: PARICALCITOL
     Route: 042
     Dates: start: 2021

REACTIONS (31)
  - Osteoporotic fracture [Unknown]
  - Hip fracture [Recovering/Resolving]
  - Lower limb fracture [Recovering/Resolving]
  - Visual impairment [Recovering/Resolving]
  - Cerebral thrombosis [Recovering/Resolving]
  - Aneurysm [Recovering/Resolving]
  - Memory impairment [Recovering/Resolving]
  - Seizure [Recovering/Resolving]
  - Osteoporosis [Not Recovered/Not Resolved]
  - Pain in extremity [Recovering/Resolving]
  - Pain in extremity [Recovering/Resolving]
  - Amnesia [Not Recovered/Not Resolved]
  - Blood parathyroid hormone increased [Recovering/Resolving]
  - Accident [Unknown]
  - Procedural pain [Unknown]
  - Haemodialysis [Unknown]
  - Localised infection [Recovering/Resolving]
  - Gait disturbance [Recovering/Resolving]
  - Dialysis [Unknown]
  - Speech disorder [Unknown]
  - Hypertension [Unknown]
  - Fistula [Recovering/Resolving]
  - Pain in extremity [Recovering/Resolving]
  - Skin discolouration [Recovering/Resolving]
  - Nail disorder [Recovering/Resolving]
  - Respiratory tract congestion [Recovering/Resolving]
  - Influenza like illness [Recovering/Resolving]
  - Decreased appetite [Recovering/Resolving]
  - Gait disturbance [Recovering/Resolving]
  - Musculoskeletal disorder [Not Recovered/Not Resolved]
  - Pain in extremity [Not Recovered/Not Resolved]

NARRATIVE: CASE EVENT DATE: 20160101
